FAERS Safety Report 5772453-8 (Version None)
Quarter: 2008Q2

REPORT INFORMATION
  Report Type: 
  Country: None (occurrence: None)
  Receive Date: 20080613
  Receipt Date: 20080609
  Transmission Date: 20081010
  Serious: Yes (Other)
  Sender: FDA-Public Use
  Company Number: ES-SANOFI-SYNTHELABO-A01200806551

PATIENT
  Age: 50 Year
  Sex: Female

DRUGS (1)
  1. ELOXATIN [Suspect]
     Indication: ADENOCARCINOMA
     Dosage: 140 MG
     Route: 042
     Dates: start: 20061013

REACTIONS (5)
  - DEPRESSED LEVEL OF CONSCIOUSNESS [None]
  - ERYTHEMA [None]
  - FEELING HOT [None]
  - HYPERHIDROSIS [None]
  - HYPOTENSION [None]
